FAERS Safety Report 10468742 (Version 3)
Quarter: 2015Q2

REPORT INFORMATION
  Report Type: Spontaneous
  Country: NL (occurrence: NL)
  Receive Date: 20140923
  Receipt Date: 20150624
  Transmission Date: 20150821
  Serious: Yes (Hospitalization)
  Sender: FDA-Public Use
  Company Number: NL-AMGEN-NLDSP2014071675

PATIENT
  Age: 67 Year
  Sex: Male
  Weight: 71 kg

DRUGS (21)
  1. PARACETAMOL [Concomitant]
     Active Substance: ACETAMINOPHEN
     Dosage: 500 MG, AS NECESSARY
     Route: 048
     Dates: start: 2014
  2. MOVICOLON [Concomitant]
     Active Substance: POLYETHYLENE GLYCOL 3350\POTASSIUM CHLORIDE\SODIUM BICARBONATE\SODIUM CHLORIDE
     Dosage: UNK UNK, AS NECESSARY
     Route: 048
     Dates: start: 2014
  3. PREDNISOLONE. [Concomitant]
     Active Substance: PREDNISOLONE
     Dosage: 5 MG, BID
     Route: 048
  4. ALFACALCIDOL [Concomitant]
     Active Substance: ALFACALCIDOL
     Dosage: 1 MUG, TID
     Route: 048
  5. OXYCONTIN [Concomitant]
     Active Substance: OXYCODONE HYDROCHLORIDE
     Dosage: 1 DF(20 MG), BID
     Dates: start: 20140711, end: 20140801
  6. CALCI CHEW D3 [Concomitant]
     Active Substance: CALCIUM CARBONATE\CHOLECALCIFEROL
     Dosage: 1 DF (500MG/400IU), QD
     Dates: start: 2014, end: 2014
  7. XGEVA [Suspect]
     Active Substance: DENOSUMAB
     Indication: PROPHYLAXIS
     Dosage: 120 MG, Q4WK
     Route: 058
     Dates: start: 20140725, end: 20140801
  8. DOCETAXEL. [Concomitant]
     Active Substance: DOCETAXEL
     Dosage: 75 MG/M2, Q3WK
     Dates: start: 2014
  9. PANTOPRAZOL TEVA [Concomitant]
     Active Substance: PANTOPRAZOLE SODIUM
     Dosage: 20 MG, QD
     Route: 048
  10. PHOSPHATE                          /01053101/ [Concomitant]
     Dosage: 1 MMOL/ML, 1 X 30 MMOL PER DAY
     Route: 048
  11. ABIRATERONE [Concomitant]
     Active Substance: ABIRATERONE
     Dosage: 250 MG, QID
     Route: 048
  12. ZOLADEX [Concomitant]
     Active Substance: GOSERELIN ACETATE
     Dosage: 10.8 MG, Q3MO
     Dates: start: 201406
  13. SILODYX [Concomitant]
     Active Substance: SILODOSIN
     Dosage: 8 MG, QD
     Route: 048
  14. TEMAZEPAM. [Concomitant]
     Active Substance: TEMAZEPAM
     Dosage: 10 MG, QD
     Route: 048
  15. SODIUM CHLORIDE + DEXTROSE [Concomitant]
     Dosage: 9 MG/ML (50ML), BID
     Route: 043
  16. PRUNASINE                          /00435801/ [Concomitant]
     Dosage: UNK UNK, AS NECESSARY
     Dates: start: 2014, end: 2014
  17. PREDNISONE. [Concomitant]
     Active Substance: PREDNISONE
     Dosage: 1 DF (5 MG), BID
     Dates: start: 20140718
  18. TAXOTERE [Concomitant]
     Active Substance: DOCETAXEL
  19. CALCIUM CARBONATE. [Concomitant]
     Active Substance: CALCIUM CARBONATE
     Dosage: 2.5 MG, BID
     Route: 048
  20. OXYCODONE [Concomitant]
     Active Substance: OXYCODONE
     Dosage: 20 MG, BID
     Route: 048
     Dates: start: 20140711, end: 20140801
  21. OMEPRAZOLE. [Concomitant]
     Active Substance: OMEPRAZOLE
     Dosage: 1 DF, QD
     Dates: start: 2014, end: 2014

REACTIONS (7)
  - Malaise [Unknown]
  - Prostatic specific antigen increased [Unknown]
  - Paraesthesia [Unknown]
  - Vomiting [Unknown]
  - Nausea [Unknown]
  - Hypocalcaemia [Recovering/Resolving]
  - Pelvic pain [Unknown]

NARRATIVE: CASE EVENT DATE: 201407
